FAERS Safety Report 8817137 (Version 1)
Quarter: 2012Q4

REPORT INFORMATION
  Report Type: Spontaneous
  Country: US (occurrence: None)
  Receive Date: 20121003
  Receipt Date: 20121003
  Transmission Date: 20130627
  Serious: Yes (Life-Threatening, Hospitalization)
  Sender: FDA-Public Use
  Company Number: None

PATIENT
  Age: 54 Year
  Sex: Female
  Weight: 81.65 kg

DRUGS (1)
  1. METHOTREXATE SODIUM [Suspect]
     Indication: ARTHRITIS
     Dosage: 10 tabs 1 day week once week
     Dates: start: 20120425, end: 20120828

REACTIONS (9)
  - Vomiting [None]
  - Loss of consciousness [None]
  - Haemorrhage [None]
  - Pyrexia [None]
  - Blood urine [None]
  - Migraine [None]
  - Liver disorder [None]
  - Renal disorder [None]
  - Blood test abnormal [None]
